FAERS Safety Report 5372914-X (Version None)
Quarter: 2007Q2

REPORT INFORMATION
  Report Type: 
  Country: None (occurrence: None)
  Receive Date: 20070621
  Receipt Date: 20070308
  Transmission Date: 20071010
  Serious: No
  Sender: FDA-Public Use
  Company Number: US-CVT-070071

PATIENT
  Age: 66 Year
  Sex: Female

DRUGS (19)
  1. RANEXA [Suspect]
     Indication: ANGINA PECTORIS
     Dosage: 500 MG, BID, ORAL; 500 MG, BID; 1000 MG, BID, ORAL
     Route: 048
     Dates: start: 20060927, end: 20061101
  2. RANEXA [Suspect]
     Indication: ANGINA PECTORIS
     Dosage: 500 MG, BID, ORAL; 500 MG, BID; 1000 MG, BID, ORAL
     Route: 048
     Dates: start: 20061101, end: 20061203
  3. RANEXA [Suspect]
     Indication: ANGINA PECTORIS
     Dosage: 500 MG, BID, ORAL; 500 MG, BID; 1000 MG, BID, ORAL
     Route: 048
     Dates: start: 20061204
  4. CETIRIZINE HCL [Concomitant]
  5. NASONEX [Concomitant]
  6. ZITHROMAX [Concomitant]
  7. LIPITOR [Concomitant]
  8. CLINDAMYCIN                        (CLINDAMYCIN) [Concomitant]
  9. CARDUR [Concomitant]
  10. COREG [Concomitant]
  11. ALBUTEROL /00139501/ (SALBUTAMOL) [Concomitant]
  12. ASPIRIN [Concomitant]
  13. PLAVIX [Concomitant]
  14. ZETIA [Concomitant]
  15. LOTENSIN [Concomitant]
  16. VIT B COMPLEX [Concomitant]
  17. ISMO [Concomitant]
  18. LASIX [Concomitant]
  19. ADVAIR DISKUS 100/50 [Concomitant]

REACTIONS (1)
  - CHROMATURIA [None]
